FAERS Safety Report 6295540-7 (Version None)
Quarter: 2009Q3

REPORT INFORMATION
  Report Type: 
  Country: None (occurrence: None)
  Receive Date: 20090731
  Receipt Date: 20090728
  Transmission Date: 20100115
  Serious: Yes (Hospitalization)
  Sender: FDA-Public Use
  Company Number: CIP09001830

PATIENT
  Age: 83 Year
  Sex: Female

DRUGS (3)
  1. ACTONEL [Suspect]
     Dosage: ORAL
     Route: 048
     Dates: start: 20080601
  2. CARTIA /00002701/ (ACETYLSALICYLIC ACID) [Concomitant]
  3. OLMESARTAN MEDOXOMIL [Concomitant]

REACTIONS (6)
  - BRONCHITIS [None]
  - EPISTAXIS [None]
  - HOT FLUSH [None]
  - NASAL DISCOMFORT [None]
  - UPPER RESPIRATORY TRACT INFECTION [None]
  - WRIST FRACTURE [None]
